FAERS Safety Report 12053088 (Version 1)
Quarter: 2016Q1

REPORT INFORMATION
  Report Type: Spontaneous
  Country: US (occurrence: US)
  Receive Date: 20160209
  Receipt Date: 20160209
  Transmission Date: 20160526
  Serious: No
  Sender: FDA-Public Use
  Company Number: US-ENDO PHARMACEUTICALS INC.-2015-002558

PATIENT
  Age: 61 Year
  Sex: Male
  Weight: 83.08 kg

DRUGS (2)
  1. FORTESTA [Suspect]
     Active Substance: TESTOSTERONE
     Indication: BLOOD TESTOSTERONE DECREASED
     Route: 061
     Dates: start: 201506, end: 2015
  2. FORTESTA [Suspect]
     Active Substance: TESTOSTERONE
     Indication: HYPOGONADISM
     Route: 061
     Dates: start: 2015

REACTIONS (1)
  - Application site vesicles [Recovering/Resolving]

NARRATIVE: CASE EVENT DATE: 201507
